FAERS Safety Report 4334926-4 (Version None)
Quarter: 2004Q2

REPORT INFORMATION
  Report Type: 
  Country: None (occurrence: None)
  Receive Date: 20040405
  Receipt Date: 20040323
  Transmission Date: 20050107
  Serious: Yes (Other)
  Sender: FDA-Public Use
  Company Number: 2004200969GB

PATIENT
  Sex: Female

DRUGS (1)
  1. PROSTIN E2 [Suspect]
     Indication: INDUCED LABOUR
     Dosage: 2 MG, SINGLE, VAGINAL
     Route: 067
     Dates: start: 20040222, end: 20040222

REACTIONS (4)
  - ANAPHYLACTIC REACTION [None]
  - CAESAREAN SECTION [None]
  - COMPLICATIONS OF MATERNAL EXPOSURE TO THERAPEUTIC DRUGS [None]
  - DRUG INEFFECTIVE [None]
